FAERS Safety Report 5844673-5 (Version None)
Quarter: 2008Q3

REPORT INFORMATION
  Report Type: 
  Country: None (occurrence: None)
  Receive Date: 20080812
  Receipt Date: 20080806
  Transmission Date: 20090109
  Serious: Yes (Death)
  Sender: FDA-Public Use
  Company Number: 2008-181717-NL

PATIENT
  Age: 24 Month
  Sex: Male

DRUGS (4)
  1. DEXAMETHASONE TAB [Suspect]
     Indication: ACUTE LYMPHOCYTIC LEUKAEMIA
     Dosage: ORAL
     Route: 048
  2. METHOTREXATE SODIUM [Suspect]
     Indication: ACUTE LYMPHOCYTIC LEUKAEMIA
     Dosage: ORAL
     Route: 048
  3. THIOGUANINE [Suspect]
     Indication: ACUTE LYMPHOCYTIC LEUKAEMIA
     Dosage: ORAL
     Route: 048
  4. VINCRISTINE [Suspect]
     Indication: ACUTE LYMPHOCYTIC LEUKAEMIA
     Dosage: INTRAVENOUS (NOS)
     Route: 042

REACTIONS (17)
  - ADENOVIRAL HEPATITIS [None]
  - ASCITES [None]
  - COAGULOPATHY [None]
  - COUGH [None]
  - DIARRHOEA [None]
  - EPIDERMAL NECROSIS [None]
  - FEBRILE INFECTION [None]
  - GENERAL PHYSICAL HEALTH DETERIORATION [None]
  - HEPATIC ENCEPHALOPATHY [None]
  - HEPATIC FAILURE [None]
  - HEPATOSPLENOMEGALY [None]
  - NO THERAPEUTIC RESPONSE [None]
  - PANCYTOPENIA [None]
  - PRODUCTIVE COUGH [None]
  - RASH VESICULAR [None]
  - VENOOCCLUSIVE LIVER DISEASE [None]
  - VIRAL INFECTION [None]
